FAERS Safety Report 22197269 (Version 1)
Quarter: 2023Q2

REPORT INFORMATION
  Report Type: Report from Study
  Country: US (occurrence: US)
  Receive Date: 20230411
  Receipt Date: 20230411
  Transmission Date: 20230722
  Serious: Yes (Death, Hospitalization)
  Sender: FDA-Public Use
  Company Number: US-MYLANLABS-2023M1038087

PATIENT
  Sex: Male

DRUGS (2)
  1. DEXAMETHASONE [Suspect]
     Active Substance: DEXAMETHASONE
     Indication: Streptococcal infection
     Dosage: UNK, SINGLE DOSE
     Route: 030
  2. DEXAMETHASONE [Suspect]
     Active Substance: DEXAMETHASONE
     Indication: Pharyngitis

REACTIONS (2)
  - Hyperglycaemic hyperosmolar nonketotic syndrome [Fatal]
  - Coma [Fatal]
